FAERS Safety Report 14556975 (Version 1)
Quarter: 2018Q1

REPORT INFORMATION
  Report Type: Spontaneous
  Country: JP (occurrence: JP)
  Receive Date: 20180221
  Receipt Date: 20180221
  Transmission Date: 20180509
  Serious: Yes (Other)
  Sender: FDA-Public Use
  Company Number: JP-BAYER-2018-029023

PATIENT
  Age: 71 Year
  Sex: Male

DRUGS (3)
  1. TICLOPIDINE [Concomitant]
     Active Substance: TICLOPIDINE
     Indication: PROPHYLAXIS
     Dosage: UNK
     Dates: start: 2006
  2. BAYASPIRIN 100 MG [Suspect]
     Active Substance: ASPIRIN
     Indication: PROPHYLAXIS
     Dosage: UNK
     Route: 048
     Dates: start: 2006
  3. WARFARIN POTASSIUM [Suspect]
     Active Substance: WARFARIN POTASSIUM
     Indication: CEREBRAL INFARCTION
     Dosage: UNK
     Dates: start: 2005

REACTIONS (5)
  - Drug administration error [None]
  - Cerebral infarction [Recovering/Resolving]
  - Labelled drug-drug interaction medication error [None]
  - Fall [None]
  - Subdural haematoma [Recovering/Resolving]

NARRATIVE: CASE EVENT DATE: 2007
